FAERS Safety Report 4922008-X (Version None)
Quarter: 2006Q1

REPORT INFORMATION
  Report Type: 
  Country: None (occurrence: None)
  Receive Date: 20060224
  Receipt Date: 20060119
  Transmission Date: 20060701
  Serious: Yes (Life-Threatening)
  Sender: FDA-Public Use
  Company Number: JP-SANOFI-SYNTHELABO-A01200600600

PATIENT
  Sex: Female
  Weight: 58 kg

DRUGS (4)
  1. OXALIPLATIN [Suspect]
     Indication: LARGE INTESTINE CARCINOMA
     Route: 042
     Dates: start: 20060116, end: 20060116
  2. CALCIUM LEVOFOLINATE [Suspect]
     Route: 042
     Dates: start: 20060116, end: 20060116
  3. FLUOROURACIL [Concomitant]
     Dosage: 560 MG/BODY=388.9.2 MG/M2 IN BOLUS THEN 840 MG/BODY=583.3 MG/M2 AS CONTINUOUS INFUSION, D1+2
     Route: 041
     Dates: start: 20050912, end: 20050913
  4. FLUOROURACIL [Concomitant]
     Dosage: 500 MG/BODY=347.2 MG/M2 IN BOLUS THEN 840 MG/BODY=583.3 MG/M2 AS CONTINUOUS INFUSION, D1+2
     Route: 041
     Dates: start: 20050926, end: 20051227

REACTIONS (1)
  - STATUS ASTHMATICUS [None]
